FAERS Safety Report 8295608-X (Version None)
Quarter: 2012Q2

REPORT INFORMATION
  Report Type: 
  Country: None (occurrence: None)
  Receive Date: 20120418
  Receipt Date: 20120413
  Transmission Date: 20120825
  Serious: Yes (Hospitalization)
  Sender: FDA-Public Use
  Company Number: US-AMGEN-USASP2011063540

PATIENT
  Age: 79 Year
  Sex: Male
  Weight: 72.562 kg

DRUGS (8)
  1. PRILOSEC [Concomitant]
  2. TERAZOSIN HCL [Concomitant]
  3. XGEVA [Suspect]
     Indication: PRODUCT USED FOR UNKNOWN INDICATION
     Dosage: UNK UNK, ONE TIME DOSE
     Route: 058
     Dates: start: 20111006
  4. FIRMAGON                           /01764801/ [Concomitant]
     Dosage: 80 MG, ONE TIME DOSE
     Dates: start: 20120322, end: 20120322
  5. XGEVA [Suspect]
     Dosage: UNK UNK, ONE TIME DOSE
     Route: 058
     Dates: start: 20120223
  6. SIMVASTATIN [Concomitant]
  7. FIRMAGON                           /01764801/ [Concomitant]
     Dosage: 80 MG, ONE TIME DOSE
     Dates: start: 20120223, end: 20120223
  8. ATENOLOL [Concomitant]

REACTIONS (4)
  - BLOOD CREATININE ABNORMAL [None]
  - BLOOD UREA ABNORMAL [None]
  - HYPOCALCAEMIA [None]
  - HYPERKALAEMIA [None]
